FAERS Safety Report 19210621 (Version 1)
Quarter: 2021Q2

REPORT INFORMATION
  Report Type: Spontaneous
  Country: US (occurrence: US)
  Receive Date: 20210503
  Receipt Date: 20210503
  Transmission Date: 20210717
  Serious: No
  Sender: FDA-Public Use
  Company Number: None

PATIENT
  Age: 76 Year
  Sex: Female
  Weight: 68.95 kg

DRUGS (8)
  1. TEMOZOLOMIDE. [Suspect]
     Active Substance: TEMOZOLOMIDE
     Indication: BRAIN NEOPLASM MALIGNANT
     Route: 048
     Dates: start: 20210215, end: 20210503
  2. ALLOPURINOL. [Concomitant]
     Active Substance: ALLOPURINOL
  3. KEPPRA XR [Concomitant]
     Active Substance: LEVETIRACETAM
  4. ANTI?DIARRHEAL [Concomitant]
     Active Substance: LOPERAMIDE HYDROCHLORIDE
  5. VITAMIN B12 [Concomitant]
     Active Substance: CYANOCOBALAMIN
  6. CVS MELATONIN [Concomitant]
  7. DASATINIB. [Concomitant]
     Active Substance: DASATINIB
  8. ACID REDUCER [Concomitant]
     Active Substance: ESOMEPRAZOLE MAGNESIUM

REACTIONS (2)
  - Therapy cessation [None]
  - Hospice care [None]

NARRATIVE: CASE EVENT DATE: 20210503
